FAERS Safety Report 5287991-4 (Version None)
Quarter: 2007Q2

REPORT INFORMATION
  Report Type: 
  Country: None (occurrence: None)
  Receive Date: 20070405
  Receipt Date: 20070326
  Transmission Date: 20071010
  Serious: Yes (Other)
  Sender: FDA-Public Use
  Company Number: GB-JNJFOC-20070306242

PATIENT
  Age: 14 Year
  Sex: Male
  Weight: 60.2 kg

DRUGS (4)
  1. CONCERTA [Suspect]
     Indication: ATTENTION DEFICIT/HYPERACTIVITY DISORDER
     Route: 048
  2. BECOTIDE [Concomitant]
     Indication: ASTHMA
     Route: 055
  3. MELATONIN [Concomitant]
     Indication: SLEEP DISORDER
     Route: 048
  4. VENTOLIN [Concomitant]
     Indication: ASTHMA
     Route: 055

REACTIONS (3)
  - ASTHMA [None]
  - BRONCHOSPASM [None]
  - DYSPNOEA EXERTIONAL [None]
